FAERS Safety Report 26100913 (Version 1)
Quarter: 2025Q4

REPORT INFORMATION
  Report Type: Spontaneous
  Country: EU (occurrence: EU)
  Receive Date: 20251128
  Receipt Date: 20251128
  Transmission Date: 20260117
  Serious: Yes (Death)
  Sender: LABORATOIRES SERB
  Company Number: EU-SERB S.A.S.-2189437

PATIENT
  Age: 16 Year

DRUGS (1)
  1. VORAXAZE [Suspect]
     Active Substance: GLUCARPIDASE
     Indication: Toxicity to various agents

REACTIONS (1)
  - Death [Fatal]
